FAERS Safety Report 8759860 (Version 1)
Quarter: 2012Q4

REPORT INFORMATION
  Report Type: 
  Country: BR (occurrence: BR)
  Receive Date: 20120829
  Receipt Date: 20120829
  Transmission Date: 20130627
  Serious: Yes (Other)
  Sender: FDA-Public Use
  Company Number: BR-ASTRAZENECA-2012SE60581

PATIENT
  Age: 78 Year
  Sex: Male

DRUGS (4)
  1. SELOZOK [Suspect]
     Indication: HYPERTENSION
     Route: 048
     Dates: start: 20120814, end: 201208
  2. SELOZOK [Suspect]
     Indication: ARRHYTHMIA
     Route: 048
     Dates: start: 20120814, end: 201208
  3. SELOZOK [Suspect]
     Indication: HYPERTENSION
     Route: 048
  4. SELOZOK [Suspect]
     Indication: ARRHYTHMIA
     Route: 048

REACTIONS (4)
  - Blood pressure systolic increased [Recovered/Resolved]
  - Epistaxis [Recovered/Resolved]
  - Asthenia [Not Recovered/Not Resolved]
  - Intentional drug misuse [Unknown]
